FAERS Safety Report 6094107-3 (Version None)
Quarter: 2009Q1

REPORT INFORMATION
  Report Type: 
  Country: None (occurrence: None)
  Receive Date: 20090224
  Receipt Date: 20090224
  Transmission Date: 20090719
  Serious: Yes (Hospitalization)
  Sender: FDA-Public Use
  Company Number: None

PATIENT
  Age: 68 Year
  Sex: Male

DRUGS (1)
  1. GEMCITABINE HCL [Suspect]
     Dosage: 2000 MG ONCE IV
     Route: 042
     Dates: start: 20090108, end: 20090114

REACTIONS (1)
  - ANAEMIA [None]
